FAERS Safety Report 6328100-X (Version None)
Quarter: 2009Q3

REPORT INFORMATION
  Report Type: 
  Country: None (occurrence: None)
  Receive Date: 20090825
  Receipt Date: 20081021
  Transmission Date: 20100115
  Serious: No
  Sender: FDA-Public Use
  Company Number: US-ABBOTT-08P-163-0483611-00

PATIENT
  Age: 69 Year
  Sex: Female

DRUGS (9)
  1. SYNTHROID [Suspect]
     Indication: HYPOTHYROIDISM
     Route: 048
     Dates: start: 20080101
  2. SYNTHROID [Suspect]
     Route: 048
     Dates: start: 19950101
  3. SYNTHROID [Suspect]
     Route: 048
     Dates: end: 20070101
  4. SYNTHROID [Suspect]
     Route: 048
     Dates: start: 20070101
  5. SYNTHROID [Suspect]
     Route: 048
     Dates: start: 19880101, end: 19950101
  6. IRBESARTAN [Concomitant]
     Indication: BLOOD PRESSURE
     Route: 048
     Dates: start: 20070101
  7. MULTI-VITAMIN [Concomitant]
     Indication: VITAMIN SUPPLEMENTATION
     Route: 048
  8. THIAMINE HYDROCHLORIDE [Concomitant]
     Indication: VITAMIN SUPPLEMENTATION
     Route: 048
  9. ASPIRIN [Concomitant]
     Indication: ARTHRALGIA
     Dosage: 1/2 TAB
     Route: 048

REACTIONS (5)
  - DISTURBANCE IN ATTENTION [None]
  - ERUCTATION [None]
  - FEELING ABNORMAL [None]
  - FEELING HOT [None]
  - FEELING JITTERY [None]
